FAERS Safety Report 8889370 (Version 1)
Quarter: 2012Q4

REPORT INFORMATION
  Report Type: Spontaneous
  Country: US (occurrence: None)
  Receive Date: 20121101
  Receipt Date: 20121101
  Transmission Date: 20130627
  Serious: Yes (Other)
  Sender: FDA-Public Use
  Company Number: None

PATIENT
  Age: 29 Year
  Sex: Female
  Weight: 68.04 kg

DRUGS (1)
  1. MIRENA IUD [Suspect]
     Dates: start: 20120106, end: 20121101

REACTIONS (5)
  - Mood swings [None]
  - Depression [None]
  - Acne cystic [None]
  - Diarrhoea [None]
  - Premenstrual dysphoric disorder [None]
